FAERS Safety Report 4514620-7 (Version None)
Quarter: 2004Q3

REPORT INFORMATION
  Report Type: 
  Country: None (occurrence: None)
  Receive Date: 20040927
  Receipt Date: 20040409
  Transmission Date: 20050211
  Serious: No
  Sender: FDA-Public Use
  Company Number: US072313

PATIENT
  Age: 56 Year
  Sex: Female
  Weight: 58.6 kg

DRUGS (5)
  1. NEULASTA [Suspect]
     Indication: CHEMOTHERAPY
     Dosage: 6 MG, SC
     Route: 058
     Dates: start: 20040406
  2. CYCLOPHOSPHAMIDE [Concomitant]
  3. FLUOROURACIL [Concomitant]
  4. EPIRUBICIN [Concomitant]
  5. PEPTO BISMOL [Concomitant]

REACTIONS (4)
  - CHILLS [None]
  - HEADACHE [None]
  - INFLUENZA LIKE ILLNESS [None]
  - PAIN [None]
